FAERS Safety Report 5304698-5 (Version None)
Quarter: 2007Q2

REPORT INFORMATION
  Report Type: 
  Country: None (occurrence: None)
  Receive Date: 20070423
  Receipt Date: 20070412
  Transmission Date: 20071010
  Serious: Yes (Other)
  Sender: FDA-Public Use
  Company Number: DE-JNJFOC-20070400149

PATIENT
  Age: 78 Year
  Sex: Female
  Weight: 63 kg

DRUGS (8)
  1. REMICADE [Suspect]
     Indication: PYODERMA GANGRENOSUM
     Route: 042
  2. LYRICA [Concomitant]
  3. CONCOR [Concomitant]
  4. EUTHYROX [Concomitant]
  5. ASPIRIN [Concomitant]
  6. MIRTAZAPINE [Concomitant]
  7. NOVALGIN [Concomitant]
  8. MICARDIS [Concomitant]

REACTIONS (8)
  - BLOOD THYROID STIMULATING HORMONE DECREASED [None]
  - DIABETES MELLITUS NON-INSULIN-DEPENDENT [None]
  - GAMMA-GLUTAMYLTRANSFERASE INCREASED [None]
  - GASTROINTESTINAL INFECTION [None]
  - HAEMOGLOBIN DECREASED [None]
  - PNEUMONIA [None]
  - URINARY TRACT INFECTION [None]
  - WHITE BLOOD CELL COUNT INCREASED [None]
